FAERS Safety Report 23201472 (Version 3)
Quarter: 2024Q1

REPORT INFORMATION
  Report Type: Spontaneous
  Country: GB (occurrence: GB)
  Receive Date: 20231118
  Receipt Date: 20240125
  Transmission Date: 20240409
  Serious: Yes (Hospitalization, Other)
  Sender: FDA-Public Use
  Company Number: None

PATIENT
  Age: 77 Year
  Sex: Female

DRUGS (3)
  1. ATORVASTATIN [Suspect]
     Active Substance: ATORVASTATIN
     Indication: Product used for unknown indication
     Dosage: DURATION : 21 DAYS
     Route: 065
     Dates: start: 20230816, end: 20230906
  2. BEMPEDOIC ACID\EZETIMIBE [Concomitant]
     Active Substance: BEMPEDOIC ACID\EZETIMIBE
     Indication: Anticoagulant therapy
     Dates: start: 20231103
  3. SIMVASTATIN [Concomitant]
     Active Substance: SIMVASTATIN
     Dosage: FOR DECADES

REACTIONS (3)
  - Liver injury [Not Recovered/Not Resolved]
  - Product substitution issue [Unknown]
  - Medication error [Unknown]

NARRATIVE: CASE EVENT DATE: 20230819
